FAERS Safety Report 4773385-4 (Version None)
Quarter: 2005Q3

REPORT INFORMATION
  Report Type: 
  Country: None (occurrence: None)
  Receive Date: 20050920
  Receipt Date: 20050807
  Transmission Date: 20060218
  Serious: Yes (Hospitalization)
  Sender: FDA-Public Use
  Company Number: PHFR2005GB02704

PATIENT
  Age: 45 Year
  Sex: Male

DRUGS (2)
  1. CLOZARIL [Suspect]
     Indication: SCHIZOPHRENIA
     Dosage: 400MG/DAY
     Route: 048
     Dates: start: 19980128
  2. CLOZARIL [Suspect]

REACTIONS (6)
  - ABDOMINAL PAIN [None]
  - DIARRHOEA [None]
  - HAEMOGLOBIN DECREASED [None]
  - MELAENA [None]
  - VOMITING [None]
  - WHITE BLOOD CELL COUNT INCREASED [None]
